FAERS Safety Report 5786404-3 (Version None)
Quarter: 2008Q2

REPORT INFORMATION
  Report Type: 
  Country: None (occurrence: None)
  Receive Date: 20080624
  Receipt Date: 20080616
  Transmission Date: 20081010
  Serious: Yes (Hospitalization)
  Sender: FDA-Public Use
  Company Number: BE-AMGEN-UK287928

PATIENT
  Sex: Female

DRUGS (2)
  1. PANITUMUMAB [Suspect]
     Indication: COLORECTAL CANCER
     Route: 042
     Dates: start: 20080616
  2. AMG 655 [Suspect]
     Indication: NEOPLASM MALIGNANT
     Route: 042
     Dates: start: 20080616

REACTIONS (1)
  - CHILLS [None]
